FAERS Safety Report 5367828-5 (Version None)
Quarter: 2007Q2

REPORT INFORMATION
  Report Type: 
  Country: None (occurrence: None)
  Receive Date: 20070622
  Receipt Date: 20070612
  Transmission Date: 20071010
  Serious: Yes (Death, Other)
  Sender: FDA-Public Use
  Company Number: PL-PFIZER INC-2006075044

PATIENT
  Sex: Male
  Weight: 92 kg

DRUGS (19)
  1. SU-011,248 [Suspect]
     Indication: METASTATIC RENAL CELL CARCINOMA
     Route: 048
     Dates: start: 20060505, end: 20060601
  2. DIAPREL [Concomitant]
     Route: 048
  3. METFORMAX [Concomitant]
     Route: 048
     Dates: start: 20010101
  4. CAPTOPRIL [Concomitant]
     Route: 048
     Dates: start: 20060101
  5. AMLOZEK [Concomitant]
     Route: 048
     Dates: start: 20060101
  6. BISOPROLOL FUMARATE [Concomitant]
     Route: 048
  7. ENAP [Concomitant]
     Route: 048
     Dates: start: 20060101
  8. FUROSEMIDE [Concomitant]
     Route: 048
     Dates: start: 20060119
  9. KALIPOZ [Concomitant]
     Route: 048
  10. NO-SPA [Concomitant]
     Route: 042
     Dates: start: 20060602, end: 20060602
  11. XYLOCAINE [Concomitant]
     Route: 042
     Dates: start: 20060602, end: 20060602
  12. GASEC [Concomitant]
     Route: 048
     Dates: start: 20060602, end: 20070607
  13. ALDACTONE [Concomitant]
     Route: 042
     Dates: start: 20060602, end: 20060604
  14. DEXTROSE [Concomitant]
     Route: 042
     Dates: start: 20060602, end: 20060610
  15. METOCLOPRAMIDE [Concomitant]
     Route: 042
     Dates: start: 20060602, end: 20060610
  16. DEXAVEN [Concomitant]
     Route: 042
     Dates: start: 20060603, end: 20060607
  17. NYSTATIN [Concomitant]
     Route: 048
     Dates: start: 20060602, end: 20060610
  18. MANNITOL [Concomitant]
     Route: 042
     Dates: start: 20060603, end: 20060610
  19. MILURIT [Concomitant]
     Route: 048
     Dates: start: 20060603, end: 20060610

REACTIONS (8)
  - ASCITES [None]
  - DISEASE PROGRESSION [None]
  - FAECAL INCONTINENCE [None]
  - FATIGUE [None]
  - METASTATIC RENAL CELL CARCINOMA [None]
  - RENAL FAILURE [None]
  - URINARY INCONTINENCE [None]
  - VOMITING [None]
